FAERS Safety Report 9352459 (Version 1)
Quarter: 2013Q2

REPORT INFORMATION
  Report Type: Spontaneous
  Country: FR (occurrence: FR)
  Receive Date: 20130617
  Receipt Date: 20130617
  Transmission Date: 20140414
  Serious: Yes (Death, Hospitalization)
  Sender: FDA-Public Use
  Company Number: FR-BAXTER-2013BAX021784

PATIENT
  Age: 36 Year
  Sex: Male

DRUGS (2)
  1. HOLOXAN [Suspect]
     Indication: ALVEOLAR SOFT PART SARCOMA
     Route: 042
     Dates: start: 20130402, end: 20130403
  2. DOXORUBICINE [Suspect]
     Indication: ALVEOLAR SOFT PART SARCOMA
     Route: 042
     Dates: start: 20130402, end: 20130402

REACTIONS (3)
  - Confusional state [Recovered/Resolved]
  - Somnolence [Recovered/Resolved]
  - Disease progression [Fatal]
